FAERS Safety Report 6020618-2 (Version None)
Quarter: 2008Q4

REPORT INFORMATION
  Report Type: 
  Country: None (occurrence: None)
  Receive Date: 20081224
  Receipt Date: 20081224
  Transmission Date: 20090506
  Serious: Yes (Other)
  Sender: FDA-Public Use
  Company Number: None

PATIENT
  Age: 70 Year
  Sex: Female
  Weight: 57.1532 kg

DRUGS (2)
  1. CIPROFLOXACIN HCL [Suspect]
     Indication: COUGH
     Dosage: 500 MG 2X DAY
     Dates: end: 20081202
  2. CIPROFLOXACIN HCL [Suspect]
     Indication: SINUS DISORDER
     Dosage: 500 MG 2X DAY
     Dates: end: 20081202

REACTIONS (8)
  - DEPRESSION [None]
  - HYPOACUSIS [None]
  - NAUSEA [None]
  - NERVOUSNESS [None]
  - THINKING ABNORMAL [None]
  - TINNITUS [None]
  - TREMOR [None]
  - VOMITING [None]
